FAERS Safety Report 22000565 (Version 1)
Quarter: 2023Q1

REPORT INFORMATION
  Report Type: Spontaneous
  Country: US (occurrence: US)
  Receive Date: 20230216
  Receipt Date: 20230216
  Transmission Date: 20230417
  Serious: No
  Sender: FDA-Public Use
  Company Number: US-SA-2023SA050848

PATIENT
  Sex: Male

DRUGS (1)
  1. DUPIXENT [Suspect]
     Active Substance: DUPILUMAB
     Dosage: 300 MG;FREQUENCY : OTHER
     Route: 058
     Dates: end: 202212

REACTIONS (2)
  - Eczema [Unknown]
  - Product dose omission issue [Unknown]
